FAERS Safety Report 6426085-9 (Version None)
Quarter: 2009Q4

REPORT INFORMATION
  Report Type: 
  Country: None (occurrence: None)
  Receive Date: 20091103
  Receipt Date: 20091103
  Transmission Date: 20100525
  Serious: Yes (Death, Hospitalization)
  Sender: FDA-Public Use
  Company Number: None

PATIENT
  Sex: Male
  Weight: 104.7809 kg

DRUGS (12)
  1. RITUXAN [Suspect]
     Indication: B-CELL LYMPHOMA
     Dosage: 375 MG/M2 Q2WEEKS INTRAVENOUS
     Route: 042
     Dates: start: 20090811, end: 20091021
  2. CYCLOPHOSPHAMIDE [Suspect]
     Indication: B-CELL LYMPHOMA
     Dosage: 750MG/M2 Q2WEEKS INTRAVENOUS
     Route: 042
     Dates: start: 20090812, end: 20091021
  3. DOXORUBICIN HCL [Suspect]
     Indication: B-CELL LYMPHOMA
     Dosage: 50 MG/M2 Q2WEEKS INTRAVENOUS
     Route: 042
     Dates: start: 20090812, end: 20091021
  4. VINCRISTINE [Suspect]
     Indication: B-CELL LYMPHOMA
     Dosage: 2 MG FLAT DOSE Q2WEEKS INTRAVENOUS
     Route: 042
     Dates: start: 20090812, end: 20091021
  5. PREDNISONE TAB [Suspect]
     Indication: B-CELL LYMPHOMA
     Dosage: 100MG DAYS 1-5 ORAL
     Route: 048
     Dates: start: 20090812, end: 20091025
  6. PEGYLATED FILGRASTIM [Suspect]
     Indication: B-CELL LYMPHOMA
     Dosage: 6 MG DAY 2 SUBCUTANEOUS
     Route: 058
     Dates: start: 20090813, end: 20091022
  7. BACTROBAN [Concomitant]
  8. CIPRO [Concomitant]
  9. COLACE [Concomitant]
  10. EMLA [Concomitant]
  11. MAGIC MOUTHWASH [Concomitant]
  12. MULTI-VITAMIN [Concomitant]

REACTIONS (7)
  - ATRIAL FIBRILLATION [None]
  - CARDIO-RESPIRATORY ARREST [None]
  - CONVULSION [None]
  - HEART RATE IRREGULAR [None]
  - HYPOTENSION [None]
  - RESPIRATORY DISTRESS [None]
  - TACHYCARDIA [None]
